FAERS Safety Report 12417599 (Version 1)
Quarter: 2016Q2

REPORT INFORMATION
  Report Type: Other
  Country: IT (occurrence: IT)
  Receive Date: 20160530
  Receipt Date: 20160530
  Transmission Date: 20160815
  Serious: Yes (Other)
  Sender: FDA-Public Use
  Company Number: IT-LABORATOIRE HRA PHARMA-1052949

PATIENT
  Sex: Female

DRUGS (2)
  1. METHYLSULFONYLMETHANE [Concomitant]
     Active Substance: DIMETHYL SULFONE
  2. ELLA [Suspect]
     Active Substance: ULIPRISTAL ACETATE
     Route: 048
     Dates: start: 20151014, end: 20151014

REACTIONS (3)
  - Syncope [None]
  - Vaginal discharge [None]
  - Back pain [None]
